FAERS Safety Report 7442426-8 (Version None)
Quarter: 2011Q2

REPORT INFORMATION
  Report Type: 
  Country: None (occurrence: None)
  Receive Date: 20110428
  Receipt Date: 20110425
  Transmission Date: 20111010
  Serious: Yes (Death)
  Sender: FDA-Public Use
  Company Number: US-PFIZER INC-US-WYE-H18025910

PATIENT
  Sex: Male
  Weight: 71.655 kg

DRUGS (4)
  1. ABILIFY [Concomitant]
     Indication: BIPOLAR DISORDER
     Route: 065
  2. BENEFIX [Suspect]
     Indication: FACTOR IX DEFICIENCY
     Dosage: UNKNOWN DOSE, ON DEMAND
  3. BENEFIX [Suspect]
     Dosage: 12000 IU PER MONTH PROPHYLACTICALLY
     Route: 042
  4. SYMBICORT [Concomitant]
     Indication: ASTHMA

REACTIONS (1)
  - DEATH [None]
